FAERS Safety Report 4616598-4 (Version None)
Quarter: 2005Q1

REPORT INFORMATION
  Report Type: 
  Country: None (occurrence: None)
  Receive Date: 20050318
  Receipt Date: 20050302
  Transmission Date: 20050727
  Serious: Yes (Death)
  Sender: FDA-Public Use
  Company Number: L04-USA-07403-47

PATIENT
  Age: 53 Year
  Sex: Male

DRUGS (1)
  1. TIAZAC [Suspect]
     Dosage: 40 TABLET ONCE PO
     Route: 048

REACTIONS (5)
  - BLOOD PRESSURE SYSTOLIC DECREASED [None]
  - COMPLETED SUICIDE [None]
  - DYSARTHRIA [None]
  - HEART RATE DECREASED [None]
  - INTENTIONAL MISUSE [None]
